FAERS Safety Report 9147201 (Version 1)
Quarter: 2013Q1

REPORT INFORMATION
  Report Type: Spontaneous
  Country: MX (occurrence: MX)
  Receive Date: 20130307
  Receipt Date: 20130307
  Transmission Date: 20140127
  Serious: Yes (Other)
  Sender: FDA-Public Use
  Company Number: PHHY2013MX022470

PATIENT
  Age: 36 Year
  Sex: Male

DRUGS (3)
  1. TRILEPTAL [Suspect]
     Indication: NERVOUSNESS
     Dosage: 0.5 DF, QD
     Route: 048
     Dates: start: 201207
  2. TRILEPTAL [Suspect]
     Dosage: 0.25 DF, QD
     Route: 048
     Dates: start: 20130219
  3. TEGRETOL [Suspect]
     Indication: NERVOUSNESS
     Dosage: 1 UKN, QD
     Dates: start: 20080411

REACTIONS (1)
  - Kidney infection [Recovered/Resolved]
